FAERS Safety Report 10685762 (Version 1)
Quarter: 2014Q4

REPORT INFORMATION
  Report Type: Spontaneous
  Country: US (occurrence: US)
  Receive Date: 20141231
  Receipt Date: 20141231
  Transmission Date: 20150529
  Serious: No
  Sender: FDA-Public Use
  Company Number: US-MALLINCKRODT-T201404506

PATIENT

DRUGS (1)
  1. METHYLPHENIDATE HYDROCHLORIDE EXTENDED RELEASE TABLETS [Suspect]
     Active Substance: METHYLPHENIDATE HYDROCHLORIDE
     Indication: PRODUCT USED FOR UNKNOWN INDICATION
     Dosage: 36 MG, UNK
     Route: 065

REACTIONS (6)
  - Pain in extremity [Unknown]
  - Paraesthesia [Unknown]
  - Headache [Unknown]
  - Drug effect decreased [Unknown]
  - Stress [Unknown]
  - Tearfulness [Unknown]
